FAERS Safety Report 7470956-1 (Version None)
Quarter: 2011Q2

REPORT INFORMATION
  Report Type: 
  Country: None (occurrence: None)
  Receive Date: 20110502
  Receipt Date: 20110421
  Transmission Date: 20111010
  Serious: Yes (Other)
  Sender: FDA-Public Use
  Company Number: 2011SP011536

PATIENT
  Sex: Female

DRUGS (4)
  1. MIRTAZAPINE [Suspect]
     Indication: DEPRESSION
     Dosage: 15 MG, QD, PO
     Route: 048
     Dates: start: 20110114, end: 20110124
  2. RIZE [Concomitant]
  3. PAXIL [Concomitant]
  4. ZOLPIDEM [Concomitant]

REACTIONS (7)
  - CRYING [None]
  - CONFUSIONAL STATE [None]
  - COMMUNICATION DISORDER [None]
  - ABNORMAL BEHAVIOUR [None]
  - ACTIVATION SYNDROME [None]
  - HYPERVENTILATION [None]
  - AMNESIA [None]
